FAERS Safety Report 7239098-4 (Version None)
Quarter: 2011Q1

REPORT INFORMATION
  Report Type: 
  Country: None (occurrence: None)
  Receive Date: 20110121
  Receipt Date: 20110109
  Transmission Date: 20110831
  Serious: Yes (Other)
  Sender: FDA-Public Use
  Company Number: US-BAYER-2011-002975

PATIENT
  Sex: Male

DRUGS (2)
  1. ALKA-SELTZER PLUS DAY COLD LIQUID GELS [Suspect]
     Dosage: UNK
     Dates: start: 20110106
  2. ALKA-SELTZER PLUS NIGHT COLD [Suspect]
     Dosage: UNK
     Dates: start: 20110106

REACTIONS (1)
  - HAEMATOCHEZIA [None]
